FAERS Safety Report 25009731 (Version 1)
Quarter: 2025Q1

REPORT INFORMATION
  Report Type: Spontaneous
  Country: DE (occurrence: DE)
  Receive Date: 20250225
  Receipt Date: 20250225
  Transmission Date: 20250408
  Serious: Yes (Other)
  Sender: TEVA
  Company Number: None

PATIENT
  Sex: Female

DRUGS (1)
  1. VALSARTAN [Suspect]
     Active Substance: VALSARTAN
     Indication: Product used for unknown indication
     Route: 065
     Dates: start: 2018

REACTIONS (5)
  - Metastases to lung [Unknown]
  - Renal neoplasm [Unknown]
  - Product quality issue [Unknown]
  - Product impurity [Unknown]
  - Metastases to bone [Unknown]

NARRATIVE: CASE EVENT DATE: 20250124
